FAERS Safety Report 12607697 (Version 4)
Quarter: 2017Q3

REPORT INFORMATION
  Report Type: Report from Study
  Country: US (occurrence: US)
  Receive Date: 20160729
  Receipt Date: 20170914
  Transmission Date: 20171127
  Serious: Yes (Other)
  Sender: FDA-Public Use
  Company Number: US-JNJFOC-20160719446

PATIENT
  Age: 17 Year
  Sex: Female
  Weight: 63.5 kg

DRUGS (8)
  1. APRISO [Concomitant]
     Active Substance: MESALAMINE
     Indication: PROPHYLAXIS
     Dosage: 4 TABLETS IN THE MORNING
     Route: 065
  2. REMICADE [Suspect]
     Active Substance: INFLIXIMAB
     Indication: COLITIS ULCERATIVE
     Route: 042
  3. REMICADE [Suspect]
     Active Substance: INFLIXIMAB
     Indication: COLITIS ULCERATIVE
     Dosage: BEGAN AT THE AGE OF 12
     Route: 042
  4. SYNTHROID [Concomitant]
     Active Substance: LEVOTHYROXINE SODIUM
     Dosage: EVERY MORNING
     Route: 065
  5. FOLIC ACID. [Concomitant]
     Active Substance: FOLIC ACID
     Indication: NEOPLASM PROPHYLAXIS
     Dosage: EVERY MORNING
     Route: 065
  6. FERROUS SULFATE. [Concomitant]
     Active Substance: FERROUS SULFATE
     Indication: MINERAL SUPPLEMENTATION
     Dosage: EVERY NIGHT
     Route: 065
  7. PEPCID [Concomitant]
     Active Substance: FAMOTIDINE
     Indication: DYSPEPSIA
     Dosage: AS NEEDED
     Route: 065
  8. REMICADE [Suspect]
     Active Substance: INFLIXIMAB
     Indication: COLITIS ULCERATIVE
     Route: 042
     Dates: start: 2011

REACTIONS (14)
  - Folliculitis [Unknown]
  - Hypothyroidism [Unknown]
  - Clostridium difficile infection [Recovered/Resolved]
  - Nephrolithiasis [Unknown]
  - Infectious mononucleosis [Unknown]
  - Off label use [Unknown]
  - Mycoplasma infection [Unknown]
  - Antinuclear antibody increased [Unknown]
  - Product use issue [Unknown]
  - Colitis ulcerative [Recovered/Resolved]
  - Pain [Recovered/Resolved]
  - Drug specific antibody present [Unknown]
  - Respiratory tract infection [Unknown]
  - Drug level below therapeutic [Unknown]

NARRATIVE: CASE EVENT DATE: 2011
